FAERS Safety Report 14542425 (Version 1)
Quarter: 2018Q1

REPORT INFORMATION
  Report Type: Spontaneous
  Country: GB (occurrence: GB)
  Receive Date: 20180216
  Receipt Date: 20180216
  Transmission Date: 20180509
  Serious: Yes (Other)
  Sender: FDA-Public Use
  Company Number: GB-OTSUKA-DJ201404254

PATIENT

DRUGS (3)
  1. ABILIFY [Suspect]
     Active Substance: ARIPIPRAZOLE
     Indication: AUTISM SPECTRUM DISORDER
  2. CLOTRIMAZOLE. [Concomitant]
     Active Substance: CLOTRIMAZOLE
     Indication: FUNGAL INFECTION
     Route: 065
     Dates: start: 20140515
  3. ABILIFY [Suspect]
     Active Substance: ARIPIPRAZOLE
     Indication: ANXIETY
     Route: 048
     Dates: start: 20140517, end: 20140523

REACTIONS (5)
  - Dystonia [Recovering/Resolving]
  - Extrapyramidal disorder [Recovering/Resolving]
  - Off label use [Unknown]
  - Hypertonia [Recovering/Resolving]
  - Lip disorder [Recovering/Resolving]

NARRATIVE: CASE EVENT DATE: 20140517
